FAERS Safety Report 24956690 (Version 2)
Quarter: 2025Q1

REPORT INFORMATION
  Report Type: Spontaneous
  Country: US (occurrence: US)
  Receive Date: 20250211
  Receipt Date: 20250218
  Transmission Date: 20250409
  Serious: Yes (Hospitalization)
  Sender: ELI LILLY AND COMPANY
  Company Number: US-ELI_LILLY_AND_COMPANY-US202501021520

PATIENT
  Age: 67 Year
  Sex: Female

DRUGS (1)
  1. KISUNLA [Suspect]
     Active Substance: DONANEMAB-AZBT
     Indication: Dementia Alzheimer^s type
     Route: 065
     Dates: start: 20250110

REACTIONS (2)
  - Ischaemic stroke [Unknown]
  - Headache [Unknown]

NARRATIVE: CASE EVENT DATE: 20250101
